FAERS Safety Report 12338594 (Version 1)
Quarter: 2016Q2

REPORT INFORMATION
  Report Type: Spontaneous
  Country: US (occurrence: US)
  Receive Date: 20160505
  Receipt Date: 20160505
  Transmission Date: 20160815
  Serious: No
  Sender: FDA-Public Use
  Company Number: US-SA-2015SA128525

PATIENT
  Age: 44 Year
  Sex: Male

DRUGS (1)
  1. APIDRA [Suspect]
     Active Substance: INSULIN GLULISINE
     Indication: TYPE 1 DIABETES MELLITUS
     Dosage: DOSE: BASAL RATE +PRN
     Route: 065

REACTIONS (4)
  - Drug administration error [Unknown]
  - Catheter site mass [Unknown]
  - Drug ineffective [Unknown]
  - Blood glucose increased [Unknown]
